FAERS Safety Report 23660998 (Version 1)
Quarter: 2024Q1

REPORT INFORMATION
  Report Type: Spontaneous
  Country: US (occurrence: US)
  Receive Date: 20240322
  Receipt Date: 20240322
  Transmission Date: 20240410
  Serious: No
  Sender: FDA-Public Use
  Company Number: US-LEO Pharma-368779

PATIENT
  Age: 82 Year
  Sex: Male

DRUGS (1)
  1. ADBRY [Suspect]
     Active Substance: TRALOKINUMAB-LDRM
     Indication: Dermatitis atopic
     Dosage: HAD BEEN ON ADBRY FOR ABOUT 2 YEARS

REACTIONS (2)
  - Rash [Unknown]
  - Drug ineffective [Unknown]
